FAERS Safety Report 11305897 (Version 1)
Quarter: 2015Q3

REPORT INFORMATION
  Report Type: Spontaneous
  Country: US (occurrence: US)
  Receive Date: 20150723
  Receipt Date: 20150723
  Transmission Date: 20151125
  Serious: No
  Sender: FDA-Public Use
  Company Number: US-LEO PHARMA-235590

PATIENT
  Sex: Male

DRUGS (1)
  1. PICATO [Suspect]
     Active Substance: INGENOL MEBUTATE
     Indication: ACTINIC KERATOSIS
     Dates: start: 20150705, end: 20150707

REACTIONS (3)
  - Application site dryness [Not Recovered/Not Resolved]
  - Application site warmth [Unknown]
  - Application site reaction [Not Recovered/Not Resolved]
